FAERS Safety Report 13854900 (Version 1)
Quarter: 2017Q3

REPORT INFORMATION
  Report Type: Spontaneous
  Country: FR (occurrence: FR)
  Receive Date: 20170810
  Receipt Date: 20170810
  Transmission Date: 20171127
  Serious: Yes (Hospitalization)
  Sender: FDA-Public Use
  Company Number: FR-009507513-1708FRA003592

PATIENT
  Age: 61 Year
  Sex: Male

DRUGS (3)
  1. KEYTRUDA [Suspect]
     Active Substance: PEMBROLIZUMAB
     Dosage: 165 MG (165 MG, 1 IN 1 CYCLE) CYCLE 12
     Route: 042
     Dates: start: 20161021, end: 20161021
  2. OPDIVO [Suspect]
     Active Substance: NIVOLUMAB
     Indication: MALIGNANT MELANOMA
     Dosage: 246 MG, (246 MG, 1 IN 1 CYCLE)
     Route: 042
     Dates: start: 20161130
  3. KEYTRUDA [Suspect]
     Active Substance: PEMBROLIZUMAB
     Indication: MALIGNANT MELANOMA
     Dosage: 165 MG (165 MG, 1 IN 1 CYCLE) CYCLE 1
     Route: 042
     Dates: start: 20160302, end: 20170302

REACTIONS (2)
  - Sjogren^s syndrome [Not Recovered/Not Resolved]
  - Psoriasis [Not Recovered/Not Resolved]

NARRATIVE: CASE EVENT DATE: 201606
